FAERS Safety Report 5605073-6 (Version None)
Quarter: 2008Q1

REPORT INFORMATION
  Report Type: 
  Country: None (occurrence: None)
  Receive Date: 20080128
  Receipt Date: 20080118
  Transmission Date: 20080703
  Serious: Yes (Death)
  Sender: FDA-Public Use
  Company Number: JP-ABBOTT-08P-087-0432950-00

PATIENT
  Age: 44 Year
  Sex: Male
  Weight: 72 kg

DRUGS (8)
  1. KALETRA [Suspect]
     Indication: HIV INFECTION
     Dosage: 800 MG/200 MG DAILY
     Route: 048
     Dates: start: 20060424, end: 20060529
  2. LAMIVUDINE [Suspect]
     Indication: HIV INFECTION
     Route: 048
     Dates: start: 20060424, end: 20060529
  3. ZIDOVUDINE [Suspect]
     Indication: HIV INFECTION
     Route: 048
     Dates: start: 20060424, end: 20060529
  4. GANCICLOVIR [Concomitant]
     Indication: PNEUMONIA
     Dosage: NOT REPORTED
     Dates: start: 20060101, end: 20060101
  5. ANTIBIOTICS [Concomitant]
     Indication: PNEUMONIA
     Dosage: NOT REPORTED
     Dates: start: 20060101, end: 20060101
  6. BACTRIM [Concomitant]
     Indication: PNEUMONIA
     Dosage: NOT REPORTED
     Dates: start: 20060101, end: 20060101
  7. BLOOD AND RELATED PRODUCTS [Concomitant]
     Indication: RENAL FAILURE ACUTE
     Dosage: TRANSFUSION
     Dates: start: 20060101, end: 20060101
  8. BLOOD AND RELATED PRODUCTS [Concomitant]
     Indication: PNEUMONIA

REACTIONS (2)
  - IMMUNE RECONSTITUTION SYNDROME [None]
  - PROGRESSIVE MULTIFOCAL LEUKOENCEPHALOPATHY [None]
